FAERS Safety Report 4736941-5 (Version None)
Quarter: 2005Q3

REPORT INFORMATION
  Report Type: 
  Country: None (occurrence: None)
  Receive Date: 20050808
  Receipt Date: 20050728
  Transmission Date: 20060218
  Serious: Yes (Life-Threatening, Hospitalization, Disabling)
  Sender: FDA-Public Use
  Company Number: JP-ROCHE-412145

PATIENT
  Age: 62 Year
  Sex: Female

DRUGS (4)
  1. PANALDINE [Suspect]
     Indication: THROMBOSIS PROPHYLAXIS
     Route: 048
     Dates: start: 20050204, end: 20050302
  2. LIPITOR [Concomitant]
     Indication: HYPERCHOLESTEROLAEMIA
     Route: 048
     Dates: start: 20050125, end: 20050324
  3. BASEN [Concomitant]
     Indication: DIABETES MELLITUS
     Route: 048
     Dates: start: 20050125, end: 20050302
  4. GASTER [Concomitant]
     Indication: GASTRITIS
     Route: 048
     Dates: start: 20050207, end: 20050302

REACTIONS (7)
  - ANOREXIA [None]
  - CHROMATURIA [None]
  - FACE OEDEMA [None]
  - LIVER DISORDER [None]
  - LUNG DISORDER [None]
  - NAUSEA [None]
  - PRURITUS [None]
